FAERS Safety Report 8901213 (Version 3)
Quarter: 2013Q1

REPORT INFORMATION
  Report Type: Report from Study
  Country: JP (occurrence: JP)
  Receive Date: 20121109
  Receipt Date: 20130314
  Transmission Date: 20140127
  Serious: Yes (Other)
  Sender: FDA-Public Use
  Company Number: JP-VERTEX PHARMACEUTICAL INC.-2012-024242

PATIENT
  Age: 67 Year
  Sex: Male

DRUGS (16)
  1. VX-950 (TELAPREVIR) [Suspect]
     Indication: CHRONIC HEPATITIS C
     Dosage: 1500 MG, QD
     Route: 048
     Dates: start: 20120907
  2. REBETOL [Suspect]
     Indication: CHRONIC HEPATITIS C
     Dosage: 600 MG, QD
     Route: 048
     Dates: start: 20120907, end: 20121011
  3. REBETOL [Suspect]
     Dosage: 400 MG, QD
     Route: 048
     Dates: start: 20121012, end: 20130109
  4. REBETOL [Suspect]
     Dosage: 600 MG, QD
     Route: 048
     Dates: start: 20130110, end: 20130221
  5. PEGINTRON [Suspect]
     Indication: CHRONIC HEPATITIS C
     Dosage: 1.5 ?G/KG, QW
     Route: 058
     Dates: start: 20120907, end: 20120914
  6. PEGINTRON [Suspect]
     Dosage: 0.74 ?G/KG, QW
     Route: 058
     Dates: start: 20120921
  7. PEGINTRON [Suspect]
     Dosage: 0.73 ?G/KG, QW
     Route: 058
  8. PEGINTRON [Suspect]
     Dosage: 0.75 ?G/KG, QW
     Route: 058
     Dates: end: 20130221
  9. REBAMIPIDE [Concomitant]
     Dosage: 2 DF, QD
     Route: 048
  10. CELECOX [Concomitant]
     Dosage: 2 DF, QD
     Route: 048
  11. TRAMCET [Concomitant]
     Dosage: 2 DF, QD
     Route: 048
  12. LYRICA [Concomitant]
     Dosage: 2 DF, QD
     Route: 048
  13. URSO [Concomitant]
     Dosage: 6 DF, QD
     Route: 048
  14. ALLEGRA [Concomitant]
     Dosage: 120 MG, QD
     Route: 048
     Dates: end: 20130221
  15. MYSER [Concomitant]
     Dosage: UNK, QD
     Route: 061
     Dates: end: 20130221
  16. MAGMITT [Concomitant]
     Dosage: 1.5 G, QD
     Route: 048

REACTIONS (2)
  - White blood cell count decreased [Not Recovered/Not Resolved]
  - Granulocyte count decreased [Not Recovered/Not Resolved]
